FAERS Safety Report 23890120 (Version 1)
Quarter: 2024Q2

REPORT INFORMATION
  Report Type: Spontaneous
  Country: US (occurrence: US)
  Receive Date: 20240523
  Receipt Date: 20240523
  Transmission Date: 20240716
  Serious: No
  Sender: FDA-Public Use
  Company Number: US-SEBELA IRELAND LIMITED-2024SEB00026

PATIENT
  Sex: Female

DRUGS (1)
  1. RIDAURA [Suspect]
     Active Substance: AURANOFIN
     Indication: Rheumatoid arthritis
     Dosage: UNK

REACTIONS (4)
  - Ageusia [Unknown]
  - Malaise [Unknown]
  - Weight decreased [Unknown]
  - Hypophagia [Unknown]
